FAERS Safety Report 6736150-4 (Version None)
Quarter: 2010Q2

REPORT INFORMATION
  Report Type: 
  Country: None (occurrence: None)
  Receive Date: 20100521
  Receipt Date: 20100513
  Transmission Date: 20101027
  Serious: Yes (Other)
  Sender: FDA-Public Use
  Company Number: NL-ROCHE-700677

PATIENT
  Sex: Female
  Weight: 73 kg

DRUGS (2)
  1. TAMIFLU [Suspect]
     Dosage: ROUTE: PER OS
     Route: 048
  2. MESALAZINE [Concomitant]
     Dosage: STARTED PRIOR TO PREGNANCY
     Route: 048

REACTIONS (1)
  - INTRA-UTERINE DEATH [None]
